FAERS Safety Report 15801777 (Version 3)
Quarter: 2019Q1

REPORT INFORMATION
  Report Type: Spontaneous
  Country: US (occurrence: US)
  Receive Date: 20190109
  Receipt Date: 20190208
  Transmission Date: 20190417
  Serious: No
  Sender: FDA-Public Use
  Company Number: US-PFIZER INC-2019006966

PATIENT
  Age: 53 Year
  Sex: Female
  Weight: 58.97 kg

DRUGS (3)
  1. AMOXICILLIN. [Interacting]
     Active Substance: AMOXICILLIN
     Indication: DENTAL CARE
     Dosage: 500 MG, 3X/DAY
     Route: 048
     Dates: start: 201812, end: 201812
  2. AMOXICILLIN. [Interacting]
     Active Substance: AMOXICILLIN
     Dosage: UNK, 3X/DAY [600 MM 3 TIME A DAY, TOOK 2 DAYS THE STOPPED]
  3. CHANTIX [Suspect]
     Active Substance: VARENICLINE TARTRATE
     Indication: SMOKING CESSATION THERAPY
     Dosage: UNK, 1X/DAY, (STARTER PACK AND CONTINUATION THERAPY TAKING ONCE A DAY)
     Dates: start: 201811

REACTIONS (3)
  - Drug interaction [Recovered/Resolved]
  - Dyspnoea [Recovered/Resolved]
  - Discomfort [Recovered/Resolved]

NARRATIVE: CASE EVENT DATE: 201812
